FAERS Safety Report 15499971 (Version 1)
Quarter: 2018Q4

REPORT INFORMATION
  Report Type: Spontaneous
  Country: JP (occurrence: JP)
  Receive Date: 20181015
  Receipt Date: 20181015
  Transmission Date: 20190205
  Serious: Yes (Other)
  Sender: FDA-Public Use
  Company Number: JP-PFIZER INC-2018402881

PATIENT
  Age: 3 Year
  Sex: Female
  Weight: 7 kg

DRUGS (2)
  1. SOMATROPIN. [Suspect]
     Active Substance: SOMATROPIN
     Dosage: 0.39 MG/KG, WEEKLY
     Route: 058
     Dates: start: 2011
  2. SOMATROPIN. [Suspect]
     Active Substance: SOMATROPIN
     Dosage: 0.20 MG/KG, WEEKLY
     Route: 058
     Dates: start: 2010

REACTIONS (4)
  - Therapeutic response decreased [Unknown]
  - Precocious puberty [Unknown]
  - Epiphyses premature fusion [Unknown]
  - Blood follicle stimulating hormone increased [Unknown]
